FAERS Safety Report 5132396-X (Version None)
Quarter: 2006Q4

REPORT INFORMATION
  Report Type: 
  Country: None (occurrence: None)
  Receive Date: 20061017
  Receipt Date: 20061003
  Transmission Date: 20070319
  Serious: Yes (Hospitalization)
  Sender: FDA-Public Use
  Company Number: PT200609005304

PATIENT
  Age: 70 Year
  Sex: Female

DRUGS (5)
  1. OLANZAPINE [Suspect]
     Indication: MAJOR DEPRESSION
     Dosage: 5 MG, DAILY (1/D), ORAL
     Route: 048
     Dates: start: 20060919, end: 20060921
  2. CLOMIPRAMINE HCL [Concomitant]
  3. LORAZEPAM [Concomitant]
  4. DILTIAZEM HCL [Concomitant]
  5. METFORMIN HCL [Concomitant]

REACTIONS (2)
  - PETECHIAE [None]
  - PLATELET COUNT DECREASED [None]
